FAERS Safety Report 9441491 (Version 1)
Quarter: 2013Q3

REPORT INFORMATION
  Report Type: Report from Study
  Country: VE (occurrence: VE)
  Receive Date: 20130805
  Receipt Date: 20130805
  Transmission Date: 20140515
  Serious: Yes (Other)
  Sender: FDA-Public Use
  Company Number: VE-ROCHE-1257327

PATIENT
  Sex: 0

DRUGS (2)
  1. BEVACIZUMAB [Suspect]
     Indication: DIABETIC RETINOPATHY
     Dosage: 1.25 MG OR 2.5 MG
     Route: 050
  2. BEVACIZUMAB [Suspect]
     Indication: OFF LABEL USE

REACTIONS (4)
  - Cerebrovascular accident [Unknown]
  - Myocardial infarction [Unknown]
  - Vitreous haemorrhage [Unknown]
  - Retinal detachment [Unknown]
